FAERS Safety Report 9153621 (Version 2)
Quarter: 2013Q2

REPORT INFORMATION
  Report Type: Spontaneous
  Country: IT (occurrence: None)
  Receive Date: 20130204
  Receipt Date: 20130422
  Transmission Date: 20140414
  Serious: Yes (Other)
  Sender: FDA-Public Use
  Company Number: AUR-APL-2013-01028

PATIENT
  Age: 56 Year
  Sex: Male

DRUGS (2)
  1. SIMVASTATIN (SIMVASTATIN) [Suspect]
     Indication: PRODUCT USED FOR UNKNOWN INDICATION
  2. PYRIDOSTIGMINE (PYRIDOSTIGMINE) [Concomitant]

REACTIONS (4)
  - Acute respiratory failure [None]
  - Respiratory tract infection [None]
  - Myasthenia gravis [None]
  - Chronic obstructive pulmonary disease [None]
